FAERS Safety Report 9858163 (Version 1)
Quarter: 2014Q1

REPORT INFORMATION
  Report Type: Spontaneous
  Country: US (occurrence: None)
  Receive Date: 20140130
  Receipt Date: 20140130
  Transmission Date: 20141002
  Serious: Yes (Disabling)
  Sender: FDA-Public Use
  Company Number: None

PATIENT
  Age: 66 Year
  Sex: Female
  Weight: 49.9 kg

DRUGS (1)
  1. ADVIL [Suspect]
     Indication: JOINT INJURY
     Dates: start: 20120303, end: 20120311

REACTIONS (4)
  - Abdominal pain upper [None]
  - Cow^s milk intolerance [None]
  - Food allergy [None]
  - Food allergy [None]
